FAERS Safety Report 9535949 (Version 2)
Quarter: 2013Q3

REPORT INFORMATION
  Report Type: Spontaneous
  Country: US (occurrence: None)
  Receive Date: 20130507
  Receipt Date: 20130724
  Transmission Date: 20140515
  Serious: Yes (Other)
  Sender: FDA-Public Use
  Company Number: PHEH2013US002500

PATIENT
  Age: 75 Year
  Sex: Female
  Weight: 61.7 kg

DRUGS (6)
  1. AFINITOR (RAD) UNKNOWN [Suspect]
     Indication: BREAST CANCER
     Route: 048
  2. AROMASIN (EXEMESTANE) [Concomitant]
  3. DIGOXIN (DIGOXIN) [Concomitant]
  4. GLIPIZIDE [Concomitant]
  5. METFORMIN [Concomitant]
  6. DYAZIDE (HYDROCHLOROTHIAZIDE, TRIAMTERENE) [Concomitant]

REACTIONS (8)
  - Hyperglycaemia [None]
  - Dysgeusia [None]
  - Nausea [None]
  - Dyspnoea [None]
  - Arthralgia [None]
  - Malaise [None]
  - Epistaxis [None]
  - Cough [None]
